FAERS Safety Report 5244169-8 (Version None)
Quarter: 2007Q1

REPORT INFORMATION
  Report Type: 
  Country: None (occurrence: None)
  Receive Date: 20070222
  Receipt Date: 20070220
  Transmission Date: 20070707
  Serious: Yes (Life-Threatening, Hospitalization, Other)
  Sender: FDA-Public Use
  Company Number: US-GLAXOSMITHKLINE-A0634488A

PATIENT
  Age: 15 Year
  Sex: Female
  Weight: 70.5 kg

DRUGS (1)
  1. LAMICTAL [Suspect]
     Route: 048
     Dates: end: 20061224

REACTIONS (5)
  - BLISTER [None]
  - CORNEAL ABRASION [None]
  - EYE PRURITUS [None]
  - ORAL MUCOSAL BLISTERING [None]
  - RASH [None]
